FAERS Safety Report 18642286 (Version 7)
Quarter: 2022Q2

REPORT INFORMATION
  Report Type: Other
  Country: IT (occurrence: None)
  Receive Date: 20201221
  Receipt Date: 20220623
  Transmission Date: 20220720
  Serious: No
  Sender: FDA-Public Use
  Company Number: IT-ROCHE-2732979

PATIENT
  Age: 29 Year
  Sex: Male
  Weight: 80 kg

DRUGS (14)
  1. OCRELIZUMAB [Suspect]
     Active Substance: OCRELIZUMAB
     Indication: Relapsing-remitting multiple sclerosis
     Dosage: 300 MG/250 ML
     Route: 042
     Dates: start: 20191227, end: 20191227
  2. OCRELIZUMAB [Suspect]
     Active Substance: OCRELIZUMAB
     Indication: Relapsing-remitting multiple sclerosis
     Dosage: 300 MG/250 ML
     Route: 042
     Dates: start: 20200113, end: 20200113
  3. OCRELIZUMAB [Suspect]
     Active Substance: OCRELIZUMAB
     Dosage: 600 MG/500 ML
     Route: 042
     Dates: start: 20200819, end: 20200819
  4. OCRELIZUMAB [Suspect]
     Active Substance: OCRELIZUMAB
     Dosage: 600 MG/500 ML
     Route: 042
     Dates: start: 20210322, end: 20210322
  5. GABAPENTIN [Concomitant]
     Active Substance: GABAPENTIN
     Route: 048
     Dates: start: 201912, end: 20200819
  6. GABAPENTIN [Concomitant]
     Active Substance: GABAPENTIN
     Route: 048
     Dates: start: 20200820
  7. BACLOFEN [Concomitant]
     Active Substance: BACLOFEN
     Route: 048
     Dates: start: 20200519, end: 20200716
  8. BACLOFEN [Concomitant]
     Active Substance: BACLOFEN
     Route: 048
     Dates: start: 20200717, end: 202008
  9. BACLOFEN [Concomitant]
     Active Substance: BACLOFEN
     Route: 048
     Dates: start: 202008
  10. OMEPRAZOLE [Concomitant]
     Active Substance: OMEPRAZOLE
     Indication: Premedication
     Dosage: SUBSEQUENT DOSE: 13/JAN/2020, 19/AUG/2020 AND 22/MAR/2021
     Route: 048
     Dates: start: 20191227
  11. METHYLPREDNISOLONE [Concomitant]
     Active Substance: METHYLPREDNISOLONE
     Indication: Premedication
     Dosage: SUBSEQUENT DOSE: 13/JAN/2020, 19/AUG/2020 AND 22/MAR/2021
     Route: 042
     Dates: start: 20191227
  12. TRIMETON [Concomitant]
     Active Substance: CHLORPHENIRAMINE MALEATE
     Indication: Premedication
     Dosage: SUBSEQUENT DOSE: 13/JAN/2020, 19/AUG/2020 AND 22/MAR/2021
     Route: 030
     Dates: start: 20191227
  13. ACETAMINOPHEN [Concomitant]
     Active Substance: ACETAMINOPHEN
     Indication: Premedication
     Dosage: SUBSEQUENT DOSE: 13/JAN/2020, 19/AUG/2020 AND 22/MAR/2021
     Route: 048
     Dates: start: 20191227, end: 20191227
  14. CETIRIZINE HYDROCHLORIDE [Concomitant]
     Active Substance: CETIRIZINE HYDROCHLORIDE
     Route: 048

REACTIONS (1)
  - COVID-19 [Recovered/Resolved]

NARRATIVE: CASE EVENT DATE: 20200922
